FAERS Safety Report 5243158-7 (Version None)
Quarter: 2007Q1

REPORT INFORMATION
  Report Type: 
  Country: None (occurrence: None)
  Receive Date: 20070213
  Receipt Date: 20070201
  Transmission Date: 20070707
  Serious: Yes (Death, Hospitalization)
  Sender: FDA-Public Use
  Company Number: GXKR2007HK01417

PATIENT
  Age: 55 Year
  Sex: Female

DRUGS (3)
  1. CLARITHROMYCIN [Suspect]
     Indication: PNEUMONIA
     Dosage: 250 MG, BID
  2. COLCHICINE(COLCHICINE) [Suspect]
     Indication: GOUT
     Dosage: 0.5 MG, BID
  3. DIALYSIS(NO INGREDIENTS/SUBSTANCES) [Concomitant]

REACTIONS (6)
  - BONE MARROW FAILURE [None]
  - DRUG INTERACTION [None]
  - GOUT [None]
  - NAUSEA [None]
  - PNEUMONIA ASPIRATION [None]
  - VOMITING [None]
